FAERS Safety Report 5502018-4 (Version None)
Quarter: 2007Q4

REPORT INFORMATION
  Report Type: 
  Country: None (occurrence: None)
  Receive Date: 20071030
  Receipt Date: 20071024
  Transmission Date: 20080405
  Serious: Yes (Other)
  Sender: FDA-Public Use
  Company Number: B0493206A

PATIENT
  Age: 64 Year
  Sex: Male

DRUGS (2)
  1. AMOXICILLIN + CLAVULANATE POTASSIUM [Suspect]
     Dosage: 1500MG PER DAY
     Route: 048
     Dates: start: 20070707, end: 20070707
  2. IBUPROFEN [Suspect]
     Dosage: 1800MG PER DAY
     Route: 048
     Dates: start: 20070707, end: 20070707

REACTIONS (2)
  - ANGIOEDEMA [None]
  - HYPOTENSION [None]
